FAERS Safety Report 24256753 (Version 1)
Quarter: 2024Q3

REPORT INFORMATION
  Report Type: Spontaneous
  Country: NL (occurrence: NL)
  Receive Date: 20240828
  Receipt Date: 20240828
  Transmission Date: 20241017
  Serious: Yes (Other)
  Sender: AUROBINDO
  Company Number: NL-LRB-00996930

PATIENT
  Age: 62 Year
  Sex: Female
  Weight: 94 kg

DRUGS (1)
  1. PREDNISOLONE [Suspect]
     Active Substance: PREDNISOLONE
     Indication: Osteoarthritis
     Dosage: 1 DOSAGE FORM (ONE-TIME)
     Route: 065
     Dates: start: 20240725

REACTIONS (1)
  - Postmenopausal haemorrhage [Recovered/Resolved]
